FAERS Safety Report 4973388-0 (Version None)
Quarter: 2006Q2

REPORT INFORMATION
  Report Type: 
  Country: None (occurrence: None)
  Receive Date: 20060414
  Receipt Date: 20051215
  Transmission Date: 20061013
  Serious: Yes (Hospitalization)
  Sender: FDA-Public Use
  Company Number: US-MERCK-0512USA02594

PATIENT
  Age: 76 Year
  Sex: Male
  Weight: 80 kg

DRUGS (9)
  1. VIOXX [Suspect]
     Indication: OSTEOARTHRITIS
     Route: 048
     Dates: start: 20001105, end: 20040930
  2. VIOXX [Suspect]
     Indication: BACK PAIN
     Route: 048
     Dates: start: 20001105, end: 20040930
  3. ASPIRIN [Concomitant]
     Route: 065
     Dates: start: 19930101
  4. ZOCOR [Concomitant]
     Indication: BLOOD CHOLESTEROL INCREASED
     Route: 065
     Dates: start: 20001010
  5. IMDUR [Concomitant]
     Indication: HYPERTENSION
     Route: 065
     Dates: start: 20000601
  6. ALTACE [Concomitant]
     Indication: HYPERTENSION
     Route: 065
     Dates: start: 19930719
  7. PLAVIX [Concomitant]
     Indication: CARDIAC DISORDER
     Route: 065
  8. ACETAMINOPHEN [Concomitant]
     Route: 065
     Dates: start: 20020205, end: 20031203
  9. TRAMADOLOR [Concomitant]
     Indication: ARTHRITIS
     Route: 065
     Dates: start: 20020205, end: 20040301

REACTIONS (3)
  - AORTIC ANEURYSM [None]
  - CORONARY ARTERY DISEASE [None]
  - MYOCARDIAL INFARCTION [None]
